FAERS Safety Report 4835949-9 (Version None)
Quarter: 2005Q4

REPORT INFORMATION
  Report Type: 
  Country: None (occurrence: None)
  Receive Date: 20051123
  Receipt Date: 20051115
  Transmission Date: 20060501
  Serious: Yes (Death)
  Sender: FDA-Public Use
  Company Number: JP-SANOFI-SYNTHELABO-A01200508035

PATIENT
  Sex: Male

DRUGS (4)
  1. OXALIPLATIN [Suspect]
     Indication: PANCREATIC CARCINOMA
     Route: 042
     Dates: start: 20051011, end: 20051011
  2. ISOVORIN [Concomitant]
     Dosage: GIVEN ON DAYS 1 AND 2 EVERY 2 WEEKS
     Route: 042
     Dates: start: 20051011, end: 20051012
  3. FLUOROURACIL [Concomitant]
     Route: 040
     Dates: start: 20051011, end: 20051011
  4. FLUOROURACIL [Concomitant]
     Route: 042
     Dates: start: 20051011, end: 20051012

REACTIONS (1)
  - INTERSTITIAL LUNG DISEASE [None]
